FAERS Safety Report 16477949 (Version 1)
Quarter: 2019Q2

REPORT INFORMATION
  Report Type: Spontaneous
  Country: CA (occurrence: CA)
  Receive Date: 20190626
  Receipt Date: 20190626
  Transmission Date: 20190711
  Serious: Yes (Hospitalization, Other)
  Sender: FDA-Public Use
  Company Number: CA-SAMSUNG BIOEPIS-SB-2019-15840

PATIENT
  Age: 69 Year
  Sex: Female
  Weight: 58 kg

DRUGS (9)
  1. MEFENAMIC ACID. [Suspect]
     Active Substance: MEFENAMIC ACID
     Indication: PAIN
     Dosage: UNKNOWN
     Route: 065
  2. REMICADE [Concomitant]
     Active Substance: INFLIXIMAB
     Indication: PRODUCT USED FOR UNKNOWN INDICATION
     Dosage: UNKNOWN
     Route: 042
  3. INFLIXIMAB [Suspect]
     Active Substance: INFLIXIMAB
     Indication: COLITIS ULCERATIVE
     Route: 042
  4. FRAGMIN [Suspect]
     Active Substance: DALTEPARIN SODIUM
     Indication: PRODUCT USED FOR UNKNOWN INDICATION
     Route: 058
  5. PREDNISONE. [Concomitant]
     Active Substance: PREDNISONE
     Indication: PRODUCT USED FOR UNKNOWN INDICATION
     Dosage: UNKNOWN
     Route: 065
  6. ELIQUIS [Suspect]
     Active Substance: APIXABAN
     Indication: PRODUCT USED FOR UNKNOWN INDICATION
     Route: 065
  7. CALCIUM [Concomitant]
     Active Substance: CALCIUM
     Indication: PROPHYLAXIS
     Dosage: UNKNOWN
     Route: 065
  8. ERGOCALCIFEROL. [Concomitant]
     Active Substance: ERGOCALCIFEROL
     Indication: PROPHYLAXIS
     Dosage: UNKNOWN
     Route: 065
  9. FERROUS FUMARATE [Concomitant]
     Active Substance: FERROUS FUMARATE
     Indication: PRODUCT USED FOR UNKNOWN INDICATION
     Route: 048

REACTIONS (26)
  - Blood albumin decreased [Recovering/Resolving]
  - Heart rate increased [Recovering/Resolving]
  - Dyspnoea exertional [Recovering/Resolving]
  - Infrequent bowel movements [Recovering/Resolving]
  - Pain in extremity [Recovering/Resolving]
  - Swelling [Recovering/Resolving]
  - Compression fracture [Recovering/Resolving]
  - Hepatic steatosis [Recovering/Resolving]
  - Hiatus hernia [Recovering/Resolving]
  - Rectal haemorrhage [Recovering/Resolving]
  - Therapeutic product effect incomplete [Recovering/Resolving]
  - C-reactive protein increased [Recovering/Resolving]
  - Chest pain [Recovering/Resolving]
  - Oedema peripheral [Recovering/Resolving]
  - Blood creatinine increased [Recovering/Resolving]
  - Neutrophil count increased [Recovering/Resolving]
  - Uterine leiomyoma [Recovering/Resolving]
  - Abdominal pain [Recovering/Resolving]
  - Dysuria [Recovering/Resolving]
  - Haemorrhage [Recovering/Resolving]
  - International normalised ratio increased [Recovering/Resolving]
  - Mobility decreased [Recovering/Resolving]
  - Platelet count increased [Recovering/Resolving]
  - Off label use [Recovering/Resolving]
  - Asthenia [Recovering/Resolving]
  - Deep vein thrombosis [Recovering/Resolving]
